FAERS Safety Report 6347878-2 (Version None)
Quarter: 2009Q3

REPORT INFORMATION
  Report Type: 
  Country: None (occurrence: None)
  Receive Date: 20090910
  Receipt Date: 20090902
  Transmission Date: 20100115
  Serious: Yes (Hospitalization)
  Sender: FDA-Public Use
  Company Number: JP-ABBOTT-09P-087-0595822-00

PATIENT
  Age: 79 Year
  Sex: Male

DRUGS (1)
  1. LEUPLIN SR FOR INJECTION KIT [Suspect]
     Indication: PROSTATE CANCER STAGE II
     Route: 058
     Dates: start: 20070904, end: 20090113

REACTIONS (2)
  - DYSURIA [None]
  - PARKINSON'S DISEASE [None]
